FAERS Safety Report 10029290 (Version 3)
Quarter: 2014Q2

REPORT INFORMATION
  Report Type: Spontaneous
  Country: RO (occurrence: RO)
  Receive Date: 20140321
  Receipt Date: 20140415
  Transmission Date: 20141212
  Serious: Yes (Hospitalization)
  Sender: FDA-Public Use
  Company Number: ALCN2014RO001864

PATIENT
  Age: 74 Year
  Sex: Male

DRUGS (2)
  1. BSS [Suspect]
     Indication: CATARACT OPERATION
     Dosage: 1 UNK, ONCE/SINGLE
     Route: 031
     Dates: start: 20140228, end: 20140228
  2. BETADINE [Suspect]
     Dosage: 1 DF, ONCE/SINGLE
     Route: 047
     Dates: start: 20140228, end: 20140228

REACTIONS (2)
  - Toxic anterior segment syndrome [Recovered/Resolved]
  - Off label use [Recovered/Resolved]
